FAERS Safety Report 12844043 (Version 2)
Quarter: 2016Q4

REPORT INFORMATION
  Report Type: Report from Study
  Country: None (occurrence: CA)
  Receive Date: 20161013
  Receipt Date: 20161102
  Transmission Date: 20170207
  Serious: Yes (Other)
  Sender: FDA-Public Use
  Company Number: CA-ABBVIE-16K-028-1745643-00

PATIENT
  Sex: Female

DRUGS (1)
  1. HUMIRA [Suspect]
     Active Substance: ADALIMUMAB
     Indication: RHEUMATOID ARTHRITIS
     Route: 058
     Dates: start: 20111105

REACTIONS (5)
  - Tendon laxity [Not Recovered/Not Resolved]
  - Malaise [Not Recovered/Not Resolved]
  - Rheumatoid nodule [Not Recovered/Not Resolved]
  - Skin cancer [Recovered/Resolved]
  - Rash macular [Not Recovered/Not Resolved]
